FAERS Safety Report 6479865-8 (Version None)
Quarter: 2009Q4

REPORT INFORMATION
  Report Type: 
  Country: None (occurrence: None)
  Receive Date: 20091202
  Receipt Date: 20091123
  Transmission Date: 20100525
  Serious: Yes (Other)
  Sender: FDA-Public Use
  Company Number: DIAT-68

PATIENT
  Age: 1 Year
  Sex: Female

DRUGS (8)
  1. DAUNOXOME [Suspect]
     Indication: ACUTE MYELOID LEUKAEMIA
  2. ALEMTUZUMAB [Suspect]
  3. BUSULFAN [Suspect]
     Dosage: 4 MG/KG DAILY PO
     Route: 048
  4. CYCLOSPORINE [Suspect]
  5. CLOFARABINE [Suspect]
  6. CYCLOPHOSPHAMIDE [Suspect]
     Dosage: 60 MG/KG DAILY
  7. MELPHALAN [Suspect]
     Dosage: 140 MG/SQM DAILY
  8. METHOTREXATE [Suspect]

REACTIONS (3)
  - HYPERTENSION [None]
  - PNEUMONIA ADENOVIRAL [None]
  - RENAL IMPAIRMENT [None]
